FAERS Safety Report 20795448 (Version 1)
Quarter: 2022Q2

REPORT INFORMATION
  Report Type: Spontaneous
  Country: US (occurrence: None)
  Receive Date: 20220505
  Receipt Date: 20220505
  Transmission Date: 20220721
  Serious: No
  Sender: FDA-Public Use
  Company Number: None

PATIENT
  Age: 49 Year
  Sex: Male
  Weight: 100.8 kg

DRUGS (1)
  1. TEPEZZA [Suspect]
     Active Substance: TEPROTUMUMAB-TRBW
     Indication: Toxic goitre
     Route: 042

REACTIONS (6)
  - Adverse drug reaction [None]
  - Fatigue [None]
  - Flatulence [None]
  - Muscle spasms [None]
  - Discomfort [None]
  - Infusion related reaction [None]

NARRATIVE: CASE EVENT DATE: 20220505
